FAERS Safety Report 7390083-1 (Version None)
Quarter: 2011Q2

REPORT INFORMATION
  Report Type: 
  Country: None (occurrence: None)
  Receive Date: 20110401
  Receipt Date: 20110330
  Transmission Date: 20111010
  Serious: Yes (Death, Life-Threatening, Other)
  Sender: FDA-Public Use
  Company Number: GB-PFIZER INC-2011064003

PATIENT
  Age: 48 Year
  Sex: Male
  Weight: 83.6 kg

DRUGS (5)
  1. PHENYTOIN [Suspect]
  2. TRAMADOL HCL [Suspect]
     Route: 048
  3. LOFEPRAMINE [Concomitant]
  4. THIORIDAZINE [Suspect]
  5. CARBAMAZEPINE [Suspect]

REACTIONS (7)
  - CIRCULATORY COLLAPSE [None]
  - VERTIGO [None]
  - EPILEPSY [None]
  - DRUG LEVEL ABOVE THERAPEUTIC [None]
  - ASPIRATION [None]
  - PULMONARY OEDEMA [None]
  - TUBERCULOSIS [None]
